FAERS Safety Report 8781605 (Version 1)
Quarter: 2012Q4

REPORT INFORMATION
  Report Type: 
  Country: US (occurrence: US)
  Receive Date: 20120913
  Receipt Date: 20120913
  Transmission Date: 20130627
  Serious: Yes (Other)
  Sender: FDA-Public Use
  Company Number: US-JNJFOC-20120903263

PATIENT
  Age: 60 Year
  Sex: Female
  Weight: 60.78 kg

DRUGS (4)
  1. BENADRYL ALLERGY DYE-FREE [Suspect]
     Indication: HYPERSENSITIVITY
     Route: 048
  2. BENADRYL ALLERGY DYE-FREE [Suspect]
     Indication: LACRIMATION INCREASED
     Route: 048
  3. BENADRYL ALLERGY DYE-FREE [Suspect]
     Indication: EYE IRRITATION
     Route: 048
  4. BLOOD PRESSURE MEDICATION NOS [Concomitant]
     Indication: HYPERTENSION
     Route: 065

REACTIONS (4)
  - Superficial injury of eye [Recovered/Resolved]
  - Corneal cyst [Recovered/Resolved]
  - Abnormal sensation in eye [Recovered/Resolved]
  - Drug ineffective for unapproved indication [Unknown]
